FAERS Safety Report 6139768-5 (Version None)
Quarter: 2009Q2

REPORT INFORMATION
  Report Type: 
  Country: None (occurrence: None)
  Receive Date: 20090401
  Receipt Date: 20090324
  Transmission Date: 20091009
  Serious: Yes (Death)
  Sender: FDA-Public Use
  Company Number: A0765311A

PATIENT
  Sex: Male

DRUGS (1)
  1. ARRANON [Suspect]
     Indication: DRUG USE FOR UNKNOWN INDICATION

REACTIONS (1)
  - T-CELL TYPE ACUTE LEUKAEMIA [None]
